FAERS Safety Report 12858919 (Version 1)
Quarter: 2016Q4

REPORT INFORMATION
  Report Type: Report from Study
  Country: CL (occurrence: CL)
  Receive Date: 20161018
  Receipt Date: 20161018
  Transmission Date: 20170207
  Serious: Yes (Other)
  Sender: FDA-Public Use
  Company Number: CL-ACTELION-A-US2016-144042

PATIENT
  Age: 40 Year
  Sex: Female

DRUGS (5)
  1. VENTAVIS [Suspect]
     Active Substance: ILOPROST
     Indication: PULMONARY HYPERTENSION
     Dosage: 5 MCG, 8/D
     Route: 055
     Dates: start: 20140516
  2. L-ARGININE HCL [Concomitant]
     Dosage: UNK
  3. NEO-SINTROM [Concomitant]
     Active Substance: ACENOCOUMAROL
     Dosage: UNK
  4. OXYGEN. [Concomitant]
     Active Substance: OXYGEN
  5. SILDENAFIL. [Concomitant]
     Active Substance: SILDENAFIL
     Dosage: UNK

REACTIONS (9)
  - Lumbar hernia [Not Recovered/Not Resolved]
  - Back pain [Unknown]
  - Tooth infection [Unknown]
  - Nasopharyngitis [Unknown]
  - Skin lesion [Recovering/Resolving]
  - Influenza [Unknown]
  - Bronchitis [Recovering/Resolving]
  - Oral disorder [Recovering/Resolving]
  - Product use issue [Recovering/Resolving]

NARRATIVE: CASE EVENT DATE: 20150104
